FAERS Safety Report 22220022 (Version 1)
Quarter: 2023Q2

REPORT INFORMATION
  Report Type: Report from Study
  Country: IT (occurrence: IT)
  Receive Date: 20230417
  Receipt Date: 20230417
  Transmission Date: 20230721
  Serious: Yes (Other)
  Sender: FDA-Public Use
  Company Number: IT-ROCHE-3322104

PATIENT
  Age: 31 Year
  Sex: Female

DRUGS (6)
  1. PREDNISONE [Suspect]
     Active Substance: PREDNISONE
     Indication: Diffuse large B-cell lymphoma
     Dosage: UNK 6 ROUNDS OF 6 DAYS
     Route: 065
     Dates: start: 202105, end: 202109
  2. VINCRISTINE SULFATE [Suspect]
     Active Substance: VINCRISTINE SULFATE
     Indication: Diffuse large B-cell lymphoma
     Dosage: UNK (6 ROUNDS OF 6 DAYS)
     Route: 065
     Dates: start: 202105, end: 202109
  3. RITUXIMAB [Suspect]
     Active Substance: RITUXIMAB
     Indication: Diffuse large B-cell lymphoma
     Dosage: UNK (6 ROUNDS OF 6 DAYS)
     Route: 065
     Dates: start: 202105, end: 202109
  4. ETOPOSIDE PHOSPHATE [Suspect]
     Active Substance: ETOPOSIDE PHOSPHATE
     Indication: Diffuse large B-cell lymphoma
     Dosage: UNK (6 ROUNDS OF 6 DAYS)
     Route: 065
     Dates: start: 202105, end: 202109
  5. DOXORUBICIN HYDROCHLORIDE [Suspect]
     Active Substance: DOXORUBICIN HYDROCHLORIDE
     Indication: Diffuse large B-cell lymphoma
     Dosage: UNK, 6 ROUNDS OF 6 DAYS
     Route: 065
     Dates: start: 202105, end: 202109
  6. CYCLOPHOSPHAMIDE [Suspect]
     Active Substance: CYCLOPHOSPHAMIDE
     Indication: Diffuse large B-cell lymphoma
     Dosage: UNK (6 ROUNDS OF 6 DAYS)
     Route: 065
     Dates: start: 202105, end: 202109

REACTIONS (7)
  - Bone pain [Unknown]
  - Procedural nausea [Unknown]
  - Diarrhoea [Unknown]
  - Alopecia [Unknown]
  - Constipation [Unknown]
  - Fatigue [Unknown]
  - Off label use [Unknown]
